FAERS Safety Report 6401748-X (Version None)
Quarter: 2009Q4

REPORT INFORMATION
  Report Type: 
  Country: None (occurrence: None)
  Receive Date: 20091009
  Receipt Date: 20090929
  Transmission Date: 20100525
  Serious: Yes (Death)
  Sender: FDA-Public Use
  Company Number: 8052766

PATIENT
  Age: 70 Year
  Sex: Female

DRUGS (3)
  1. KEPPRA [Suspect]
     Indication: EPILEPSY
     Dosage: 1000 MG 2/D PO
     Route: 048
     Dates: start: 20090926, end: 20090927
  2. KEPPRA [Suspect]
     Indication: MUSCLE SPASMS
     Dosage: 1000 MG 2/D PO
     Route: 048
     Dates: start: 20090926, end: 20090927
  3. EPANUTIN /00017402/ [Concomitant]

REACTIONS (1)
  - DEATH [None]
